FAERS Safety Report 13660177 (Version 1)
Quarter: 2017Q2

REPORT INFORMATION
  Report Type: Spontaneous
  Country: GB (occurrence: GB)
  Receive Date: 20170616
  Receipt Date: 20170616
  Transmission Date: 20170830
  Serious: Yes (Life-Threatening, Hospitalization)
  Sender: FDA-Public Use
  Company Number: GB-TORRENT-00015340

PATIENT
  Age: 72 Year
  Sex: Female
  Weight: 100 kg

DRUGS (10)
  1. CALCEOS [Concomitant]
     Active Substance: CALCIUM CARBONATE\CHOLECALCIFEROL
  2. MIRTAZAPINE. [Concomitant]
     Active Substance: MIRTAZAPINE
  3. EZETIMIBE. [Suspect]
     Active Substance: EZETIMIBE
  4. CODEINE PHOSPHATE [Concomitant]
     Active Substance: CODEINE PHOSPHATE
  5. SERTRALINE [Concomitant]
     Active Substance: SERTRALINE HYDROCHLORIDE
  6. RISPERIDONE. [Suspect]
     Active Substance: RISPERIDONE
  7. DOXAZOSIN [Concomitant]
     Active Substance: DOXAZOSIN\DOXAZOSIN MESYLATE
  8. PARACETAMOL [Concomitant]
     Active Substance: ACETAMINOPHEN
  9. AMITRIPTYLINE [Concomitant]
     Active Substance: AMITRIPTYLINE
  10. LANSOPRAZOLE. [Concomitant]
     Active Substance: LANSOPRAZOLE

REACTIONS (4)
  - Pneumonia [Unknown]
  - Acute kidney injury [Recovering/Resolving]
  - Metabolic acidosis [Unknown]
  - Fall [Unknown]

NARRATIVE: CASE EVENT DATE: 20170402
